FAERS Safety Report 8227823-5 (Version None)
Quarter: 2012Q1

REPORT INFORMATION
  Report Type: 
  Country: None (occurrence: None)
  Receive Date: 20120322
  Receipt Date: 20120314
  Transmission Date: 20120608
  Serious: Yes (Hospitalization, Other)
  Sender: FDA-Public Use
  Company Number: DE-ROCHE-1049240

PATIENT
  Sex: Male
  Weight: 82 kg

DRUGS (3)
  1. PEGINTERFERON ALFA-2A [Suspect]
     Indication: HEPATITIS C
     Route: 058
     Dates: start: 20110916, end: 20120312
  2. RIBAVIRIN [Suspect]
     Indication: HEPATITIS C
     Route: 048
  3. BOCEPREVIR [Suspect]
     Indication: HEPATITIS C
     Route: 048
     Dates: start: 20111026, end: 20120312

REACTIONS (1)
  - FACIAL PARESIS [None]
